FAERS Safety Report 17377291 (Version 1)
Quarter: 2020Q1

REPORT INFORMATION
  Report Type: Spontaneous
  Country: US (occurrence: US)
  Receive Date: 20200122
  Receipt Date: 20200122
  Transmission Date: 20200409
  Serious: Yes (Other)
  Sender: FDA-Public Use
  Company Number: None

PATIENT
  Age: 77 Year
  Sex: Female
  Weight: 92.53 kg

DRUGS (14)
  1. ATORVASTATIN [Concomitant]
     Active Substance: ATORVASTATIN
  2. ELIQUIS [Concomitant]
     Active Substance: APIXABAN
  3. CENTRUM SILVER [Concomitant]
     Active Substance: MINERALS\VITAMINS
  4. DETROL [Concomitant]
     Active Substance: TOLTERODINE TARTRATE
  5. LYRICA [Concomitant]
     Active Substance: PREGABALIN
  6. METOPROLOL. [Concomitant]
     Active Substance: METOPROLOL
  7. LISINOPRIL. [Concomitant]
     Active Substance: LISINOPRIL
  8. FUROSEMIDE. [Concomitant]
     Active Substance: FUROSEMIDE
  9. AMIODARONE 200MGM TABLET [Suspect]
     Active Substance: AMIODARONE
     Indication: ATRIAL FIBRILLATION
     Dosage: ?          QUANTITY:2 PILLS TWICE DAIL;?
     Dates: start: 20190809, end: 20191023
  10. OMEPRAZOLE. [Concomitant]
     Active Substance: OMEPRAZOLE
  11. VITAMIN B12 [Concomitant]
     Active Substance: CYANOCOBALAMIN
  12. HAIRSPRAY SALON GRAFIX [COSMETICS] [Suspect]
     Active Substance: COSMETICS
  13. ZETIA [Concomitant]
     Active Substance: EZETIMIBE
  14. IMIPRAMINE [Concomitant]
     Active Substance: IMIPRAMINE

REACTIONS (1)
  - Alopecia [None]
